FAERS Safety Report 8799894 (Version 2)
Quarter: 2020Q3

REPORT INFORMATION
  Report Type: Report from Study
  Country: US (occurrence: US)
  Receive Date: 20120919
  Receipt Date: 20121010
  Transmission Date: 20201105
  Serious: Yes (Other)
  Sender: FDA-Public Use
  Company Number: US-009507513-1201USA01073

PATIENT
  Age: 57 Year
  Sex: Male
  Weight: 77.56 kg

DRUGS (18)
  1. VANIPREVIR. [Suspect]
     Active Substance: VANIPREVIR
     Dosage: 2 DF, QAM
     Route: 048
     Dates: start: 20120109, end: 20120109
  2. COPEGUS [Suspect]
     Active Substance: RIBAVIRIN
     Dosage: 3 DF, QAM
     Route: 048
     Dates: start: 20120109, end: 20120109
  3. METFORMIN [Suspect]
     Active Substance: METFORMIN HYDROCHLORIDE
     Indication: DIABETES MELLITUS
     Dosage: 500 MG, BID
     Route: 048
     Dates: start: 20110925, end: 20111205
  4. RAMIPRIL. [Suspect]
     Active Substance: RAMIPRIL
     Indication: PROPHYLAXIS
     Dosage: 2.5 MG, QD
     Route: 048
     Dates: start: 200903, end: 20111229
  5. TRAZODONE HYDROCHLORIDE. [Concomitant]
     Active Substance: TRAZODONE HYDROCHLORIDE
     Dates: start: 200403
  6. XANTHOPHYLL [Concomitant]
     Dates: start: 200603
  7. LEVOCETIRIZINE [Concomitant]
     Active Substance: LEVOCETIRIZINE
     Indication: HYPERSENSITIVITY
     Dosage: 5 MG, QD
     Route: 048
     Dates: start: 20110318
  8. ROSUVASTATIN CALCIUM. [Concomitant]
     Active Substance: ROSUVASTATIN CALCIUM
     Indication: BLOOD CHOLESTEROL INCREASED
     Dosage: 10 MG, QD
     Route: 048
     Dates: start: 20120304
  9. OMEPRAZOLE. [Concomitant]
     Active Substance: OMEPRAZOLE
     Dates: start: 200603
  10. COPEGUS [Suspect]
     Active Substance: RIBAVIRIN
     Dosage: 3 DF, QPM
     Route: 048
     Dates: start: 20110304, end: 20120105
  11. PIROXICAM. [Suspect]
     Active Substance: PIROXICAM
     Indication: FOOT DEFORMITY
     Dosage: 20 MG, QD
     Route: 048
     Dates: start: 200903, end: 20111229
  12. FLONASE [Concomitant]
     Active Substance: FLUTICASONE PROPIONATE
     Indication: HYPERSENSITIVITY
     Dosage: 1 SPRAY REPORTED AS STRENGTH AND DOSE WAS 1
     Route: 045
     Dates: start: 20090101
  13. METFORMIN [Concomitant]
     Active Substance: METFORMIN HYDROCHLORIDE
     Indication: DIABETES MELLITUS
     Dosage: 500 MG, QD
     Route: 048
     Dates: start: 20111206
  14. VANIPREVIR. [Suspect]
     Active Substance: VANIPREVIR
     Indication: CHRONIC HEPATITIS C
     Dosage: 2.00 DF, QAM
     Route: 048
     Dates: start: 20110304, end: 20120106
  15. VANIPREVIR. [Suspect]
     Active Substance: VANIPREVIR
     Dosage: 2 DF, QPM
     Route: 048
     Dates: start: 20110304, end: 20120105
  16. COPEGUS [Suspect]
     Active Substance: RIBAVIRIN
     Indication: CHRONIC HEPATITIS C
     Dosage: 3 DF, QAM
     Route: 048
     Dates: start: 20110304, end: 20120105
  17. AMBIEN [Concomitant]
     Active Substance: ZOLPIDEM TARTRATE
     Indication: SLEEP DISORDER
     Dosage: 12.5 MG, QD
     Route: 048
     Dates: start: 20101216
  18. PEGINTERFERON ALFA?2A. [Suspect]
     Active Substance: PEGINTERFERON ALFA-2A
     Indication: CHRONIC HEPATITIS C
     Dosage: 180 MICROGRAM, QW
     Route: 058
     Dates: start: 20110304, end: 20111230

REACTIONS (2)
  - Alanine aminotransferase increased [Recovered/Resolved]
  - Aspartate aminotransferase increased [Recovered/Resolved]

NARRATIVE: CASE EVENT DATE: 20120103
